FAERS Safety Report 8083466-8 (Version None)
Quarter: 2012Q1

REPORT INFORMATION
  Report Type: 
  Country: None (occurrence: None)
  Receive Date: 20120127
  Receipt Date: 20110315
  Transmission Date: 20120608
  Serious: No
  Sender: FDA-Public Use
  Company Number: US-ABBOTT-11P-163-0700773-00

PATIENT
  Age: 21 Year
  Sex: Male

DRUGS (14)
  1. HUMIRA [Suspect]
  2. ALLEGRA [Concomitant]
     Indication: HYPERSENSITIVITY
     Dosage: 180 MG DAILY
  3. NEXIUM [Concomitant]
     Indication: GASTROOESOPHAGEAL REFLUX DISEASE
     Dosage: 40MG DAILY
  4. ASACOL [Concomitant]
     Indication: CROHN'S DISEASE
     Dosage: 400MG/4 TABS/3 TIMES A DAY
  5. NASONEX [Concomitant]
     Indication: HYPERSENSITIVITY
     Dosage: 50 MCG DAILY AS REQUIRED
     Route: 045
  6. NEURONTIN [Concomitant]
     Indication: MIGRAINE
     Dosage: 2 TABS TWICE A DAY
  7. HUMIRA [Suspect]
  8. INVEGA [Concomitant]
     Indication: PSYCHOTIC DISORDER
     Dosage: 6MG DAILY
  9. CELEXA [Concomitant]
     Indication: DEPRESSION
     Dosage: 20MG DAILY
  10. HUMIRA [Suspect]
     Indication: CROHN'S DISEASE
     Dates: start: 20101022
  11. ASTEPRO [Concomitant]
     Indication: HYPERSENSITIVITY
     Dosage: 0.15% DAILY AS REQUIRED
     Route: 045
  12. VISTARIL [Concomitant]
     Indication: ANXIETY
     Dosage: 50 MG DAILY
  13. FIORICET [Concomitant]
     Indication: MIGRAINE
     Dosage: 50/325/40MG TWICE WEEKLY AS REQUIRED
  14. FIORICET [Concomitant]

REACTIONS (10)
  - NAUSEA [None]
  - ABDOMINAL PAIN UPPER [None]
  - HAEMORRHAGE [None]
  - GASTROINTESTINAL PAIN [None]
  - CROHN'S DISEASE [None]
  - DRUG DOSE OMISSION [None]
  - FEELING ABNORMAL [None]
  - ASTHENIA [None]
  - DIARRHOEA [None]
  - PAIN [None]
